FAERS Safety Report 9448563 (Version 3)
Quarter: 2014Q1

REPORT INFORMATION
  Report Type: Spontaneous
  Country: GB (occurrence: GB)
  Receive Date: 20130808
  Receipt Date: 20140121
  Transmission Date: 20141002
  Serious: Yes (Congenital Anomaly)
  Sender: FDA-Public Use
  Company Number: GB-TEVA-422749ISR

PATIENT
  Sex: Female
  Weight: 2.65 kg

DRUGS (2)
  1. QUETIAPINE [Suspect]
     Indication: BIPOLAR DISORDER
     Dosage: DATE STARTED DURING PREGNANCY, STOPPED 4 WEEKS BEFORE DELIVERY.
     Route: 064
  2. DIAZEPAM [Concomitant]
     Dosage: 6 MILLIGRAM DAILY;

REACTIONS (2)
  - Congenital hand malformation [Unknown]
  - Arthropathy [Unknown]
